FAERS Safety Report 19011117 (Version 1)
Quarter: 2021Q1

REPORT INFORMATION
  Report Type: Spontaneous
  Country: US (occurrence: US)
  Receive Date: 20210315
  Receipt Date: 20210315
  Transmission Date: 20210420
  Serious: Yes (Hospitalization)
  Sender: FDA-Public Use
  Company Number: None

PATIENT
  Sex: Female

DRUGS (1)
  1. IMATINIB MES 100MG TAB [Suspect]
     Active Substance: IMATINIB MESYLATE
     Indication: ACUTE LYMPHOCYTIC LEUKAEMIA
     Dosage: OTHER DOSE:2 + 1/2 TABS;OTHER FREQUENCY:  QPM PO?
     Route: 048
     Dates: start: 20200726

REACTIONS (1)
  - Surgery [None]
